FAERS Safety Report 19577434 (Version 2)
Quarter: 2021Q3

REPORT INFORMATION
  Report Type: Spontaneous
  Country: DE (occurrence: DE)
  Receive Date: 20210719
  Receipt Date: 20210719
  Transmission Date: 20211014
  Serious: Yes (Life-Threatening, Hospitalization)
  Sender: FDA-Public Use
  Company Number: DE-PFIZER INC-2021842876

PATIENT
  Age: 26 Year
  Sex: Male
  Weight: 83 kg

DRUGS (2)
  1. RAMIPRIL. [Suspect]
     Active Substance: RAMIPRIL
     Indication: SUICIDE ATTEMPT
     Dosage: 700 MG
     Route: 048
  2. AMLODIPINE BESILATE [Suspect]
     Active Substance: AMLODIPINE BESYLATE
     Indication: SUICIDE ATTEMPT
     Dosage: 500 MG
     Route: 048

REACTIONS (8)
  - Suicide attempt [Recovering/Resolving]
  - Shock [Recovering/Resolving]
  - Circulatory collapse [Recovering/Resolving]
  - Atrial fibrillation [Recovering/Resolving]
  - Pulmonary congestion [Recovering/Resolving]
  - Intentional overdose [Unknown]
  - Distributive shock [Recovering/Resolving]
  - Pleural effusion [Recovering/Resolving]
